FAERS Safety Report 6635363-X (Version None)
Quarter: 2010Q1

REPORT INFORMATION
  Report Type: 
  Country: None (occurrence: None)
  Receive Date: 20100312
  Receipt Date: 20100312
  Transmission Date: 20100710
  Serious: Yes (Hospitalization)
  Sender: FDA-Public Use
  Company Number: None

PATIENT
  Sex: Female
  Weight: 31.5704 kg

DRUGS (4)
  1. ADRIAMYCIN PFS [Suspect]
  2. CYTOXAN [Suspect]
  3. . [Concomitant]
  4. . [Concomitant]

REACTIONS (5)
  - ASTHENIA [None]
  - CACHEXIA [None]
  - DEHYDRATION [None]
  - DIARRHOEA [None]
  - HYPOKALAEMIA [None]
